FAERS Safety Report 9314220 (Version 1)
Quarter: 2013Q2

REPORT INFORMATION
  Report Type: Report from Study
  Country: CA (occurrence: CA)
  Receive Date: 20130529
  Receipt Date: 20130529
  Transmission Date: 20140414
  Serious: Yes (Other)
  Sender: FDA-Public Use
  Company Number: CA-JNJFOC-20130516722

PATIENT
  Age: 42 Year
  Sex: Female
  Weight: 92.8 kg

DRUGS (9)
  1. REMICADE [Suspect]
     Indication: CROHN^S DISEASE
     Dosage: 39TH INFUSION
     Route: 042
     Dates: start: 20130325
  2. REMICADE [Suspect]
     Indication: CROHN^S DISEASE
     Route: 042
     Dates: start: 200608
  3. IMURAN [Concomitant]
     Route: 048
  4. QUESTRAN [Concomitant]
     Route: 065
  5. CALCIUM [Concomitant]
     Route: 065
  6. VITAMIN D [Concomitant]
     Route: 065
  7. VITAMIN B12 [Concomitant]
     Route: 065
  8. IMODIUM [Concomitant]
     Route: 065
  9. REACTINE [Concomitant]
     Route: 065

REACTIONS (2)
  - Fistula [Not Recovered/Not Resolved]
  - Tooth infection [Recovered/Resolved]
